FAERS Safety Report 8947480 (Version 1)
Quarter: 2012Q4

REPORT INFORMATION
  Report Type: 
  Country: US (occurrence: US)
  Receive Date: 20121205
  Receipt Date: 20121205
  Transmission Date: 20130627
  Serious: No
  Sender: FDA-Public Use
  Company Number: US-PFIZER INC-2012300862

PATIENT
  Age: 60 Year
  Sex: Female
  Weight: 54.42 kg

DRUGS (5)
  1. PREMARIN [Suspect]
     Indication: MENOPAUSAL DISORDER
     Dosage: 0.625 mg, daily
     Route: 048
     Dates: start: 198809
  2. PREMARIN [Suspect]
     Dosage: 0.3 mg, daily
     Route: 048
     Dates: start: 201112, end: 201201
  3. PREMARIN [Suspect]
     Dosage: 0.45 mg, 1x/day
     Dates: start: 2012
  4. MULTIVITAMINS [Concomitant]
     Dosage: UNK
  5. VITAMIN D [Concomitant]
     Dosage: UNK

REACTIONS (4)
  - Drug ineffective [Unknown]
  - Fatigue [Recovered/Resolved]
  - Feeling abnormal [Recovered/Resolved]
  - Drug prescribing error [Unknown]
